FAERS Safety Report 18726826 (Version 3)
Quarter: 2021Q1

REPORT INFORMATION
  Report Type: Spontaneous
  Country: IL (occurrence: UA)
  Receive Date: 20210111
  Receipt Date: 20210218
  Transmission Date: 20210419
  Serious: Yes (Death, Other)
  Sender: FDA-Public Use
  Company Number: IL-BAYER-2021-019838

PATIENT
  Age: 3 Year
  Sex: Male

DRUGS (2)
  1. LAROTRECTINIB [Suspect]
     Active Substance: LAROTRECTINIB
     Indication: MALIGNANT GLIOMA
     Dosage: 55 MG, BID
     Dates: start: 201912
  2. LAROTRECTINIB [Suspect]
     Active Substance: LAROTRECTINIB
     Indication: MALIGNANT GLIOMA
     Dosage: 64 MG, BID
     Dates: start: 202101, end: 20210208

REACTIONS (5)
  - Malignant glioma [None]
  - Drug ineffective [None]
  - Multiple organ dysfunction syndrome [Fatal]
  - Hydrocephalus [Recovering/Resolving]
  - Vomiting [None]

NARRATIVE: CASE EVENT DATE: 202011
